FAERS Safety Report 5447769-5 (Version None)
Quarter: 2007Q3

REPORT INFORMATION
  Report Type: 
  Country: None (occurrence: None)
  Receive Date: 20070910
  Receipt Date: 20070906
  Transmission Date: 20080115
  Serious: Yes (Death)
  Sender: FDA-Public Use
  Company Number: JP-ASTRAZENECA-2007AP05415

PATIENT
  Age: 16509 Day
  Sex: Female
  Weight: 40 kg

DRUGS (4)
  1. NOLVADEX [Suspect]
     Indication: BREAST CANCER
     Route: 048
     Dates: start: 20040527, end: 20050608
  2. TAXOL [Suspect]
     Indication: BREAST CANCER
     Route: 042
     Dates: start: 20040513, end: 20050406
  3. HERCEPTIN [Suspect]
     Indication: BREAST CANCER
     Route: 042
     Dates: start: 20040527, end: 20050608
  4. FAMOTIDINE [Concomitant]
     Indication: DYSPEPSIA
     Route: 048
     Dates: start: 20040527, end: 20050608

REACTIONS (1)
  - HEPATIC FAILURE [None]
